FAERS Safety Report 7960776-3 (Version None)
Quarter: 2011Q4

REPORT INFORMATION
  Report Type: 
  Country: None (occurrence: None)
  Receive Date: 20111207
  Receipt Date: 20111129
  Transmission Date: 20120403
  Serious: Yes (Hospitalization)
  Sender: FDA-Public Use
  Company Number: US-BIOGENIDEC-2011BI011215

PATIENT
  Age: 34 Year
  Sex: Female

DRUGS (2)
  1. TYSABRI [Suspect]
     Indication: MULTIPLE SCLEROSIS
     Route: 042
     Dates: start: 20080702, end: 20110207
  2. TYSABRI [Suspect]
     Route: 042
     Dates: start: 20110610, end: 20110819

REACTIONS (11)
  - PNEUMONIA BACTERIAL [None]
  - ABDOMINAL PAIN [None]
  - VOMITING [None]
  - UROSEPSIS [None]
  - ANAEMIA [None]
  - DIARRHOEA [None]
  - DECREASED IMMUNE RESPONSIVENESS [None]
  - FATIGUE [None]
  - DEHYDRATION [None]
  - PNEUMONIA [None]
  - MULTIPLE SCLEROSIS RELAPSE [None]
